FAERS Safety Report 20505742 (Version 1)
Quarter: 2022Q1

REPORT INFORMATION
  Report Type: Spontaneous
  Country: US (occurrence: None)
  Receive Date: 20220223
  Receipt Date: 20220223
  Transmission Date: 20220423
  Serious: Yes (Other)
  Sender: FDA-Public Use
  Company Number: US-Hikma Pharmaceuticals USA Inc.-US-H14001-21-03912

PATIENT
  Sex: Female

DRUGS (2)
  1. FLUTICASONE [Suspect]
     Active Substance: FLUTICASONE
     Indication: Multiple allergies
     Route: 045
  2. AZELASTINE [Suspect]
     Active Substance: AZELASTINE
     Indication: Product used for unknown indication
     Dosage: UNKNOWN
     Route: 065

REACTIONS (3)
  - Epistaxis [Unknown]
  - Product dose omission issue [Unknown]
  - Product use in unapproved indication [Unknown]
